FAERS Safety Report 14238748 (Version 1)
Quarter: 2017Q4

REPORT INFORMATION
  Report Type: Spontaneous
  Country: US (occurrence: None)
  Receive Date: 20171129
  Receipt Date: 20171129
  Transmission Date: 20180321
  Serious: Yes (Hospitalization)
  Sender: FDA-Public Use
  Company Number: None

PATIENT
  Age: 62 Year
  Sex: Male

DRUGS (14)
  1. ZOCOR [Concomitant]
     Active Substance: SIMVASTATIN
  2. DOC-Q-LAX [Concomitant]
  3. ABILIFY [Concomitant]
     Active Substance: ARIPIPRAZOLE
  4. LASIX [Concomitant]
     Active Substance: FUROSEMIDE
  5. CLARITIN [Concomitant]
     Active Substance: LORATADINE
  6. CALCITRIOL. [Concomitant]
     Active Substance: CALCITRIOL
  7. COREG [Concomitant]
     Active Substance: CARVEDILOL
  8. PROCARDIA [Concomitant]
     Active Substance: NIFEDIPINE
  9. SENSIPAR [Suspect]
     Active Substance: CINACALCET HYDROCHLORIDE
     Indication: HYPOPARATHYROIDISM SECONDARY
     Route: 048
     Dates: start: 20160927
  10. ASPIRIN. [Concomitant]
     Active Substance: ASPIRIN
  11. CATAPRES [Concomitant]
     Active Substance: CLONIDINE HYDROCHLORIDE
  12. ZOLOFT [Concomitant]
     Active Substance: SERTRALINE HYDROCHLORIDE
  13. OXYBUTYNIN. [Concomitant]
     Active Substance: OXYBUTYNIN CHLORIDE
  14. LAMICTAL [Concomitant]
     Active Substance: LAMOTRIGINE

REACTIONS (1)
  - Hospitalisation [None]

NARRATIVE: CASE EVENT DATE: 2017
